FAERS Safety Report 12462484 (Version 1)
Quarter: 2016Q2

REPORT INFORMATION
  Report Type: Spontaneous
  Country: CN (occurrence: CN)
  Receive Date: 20160614
  Receipt Date: 20160614
  Transmission Date: 20160815
  Serious: Yes (Hospitalization, Other)
  Sender: FDA-Public Use
  Company Number: CN-ROCHE-1771119

PATIENT
  Age: 55 Year
  Sex: Female

DRUGS (1)
  1. AVASTIN [Suspect]
     Active Substance: BEVACIZUMAB
     Indication: LUNG NEOPLASM MALIGNANT
     Route: 041
     Dates: start: 201601

REACTIONS (8)
  - Fatigue [Unknown]
  - Pain [Unknown]
  - Platelet count decreased [Unknown]
  - Vomiting [Unknown]
  - White blood cell count decreased [Unknown]
  - Red blood cell count decreased [Unknown]
  - Metastasis [Unknown]
  - Metastases to thorax [Unknown]

NARRATIVE: CASE EVENT DATE: 20160603
